FAERS Safety Report 5610443-6 (Version None)
Quarter: 2008Q1

REPORT INFORMATION
  Report Type: 
  Country: None (occurrence: None)
  Receive Date: 20080128
  Receipt Date: 20080115
  Transmission Date: 20080703
  Serious: Yes (Hospitalization, Other)
  Sender: FDA-Public Use
  Company Number: RENA-1000019

PATIENT
  Age: 76 Year
  Sex: Male

DRUGS (2)
  1. RENAGEL [Suspect]
     Indication: HYPERPHOSPHATAEMIA
     Dosage: 0.8G, TID, ORAL; 0.8 G, TID, OTHER
     Route: 048
     Dates: start: 20060915, end: 20070501
  2. RENAGEL [Suspect]
     Indication: HYPERPHOSPHATAEMIA
     Dosage: 0.8G, TID, ORAL; 0.8 G, TID, OTHER
     Route: 048
     Dates: start: 20070501, end: 20071209

REACTIONS (3)
  - CEREBROVASCULAR ACCIDENT [None]
  - FEEDING TUBE COMPLICATION [None]
  - WRONG TECHNIQUE IN DRUG USAGE PROCESS [None]
